FAERS Safety Report 24112687 (Version 2)
Quarter: 2024Q3

REPORT INFORMATION
  Report Type: Spontaneous
  Country: US (occurrence: US)
  Receive Date: 20240719
  Receipt Date: 20240731
  Transmission Date: 20241016
  Serious: Yes (Other)
  Sender: AMGEN
  Company Number: US-AMGEN-USASP2024140640

PATIENT
  Sex: Female

DRUGS (1)
  1. PROLIA [Suspect]
     Active Substance: DENOSUMAB
     Indication: Product used for unknown indication
     Dosage: UNK
     Route: 065

REACTIONS (3)
  - Blindness transient [Unknown]
  - Vertigo [Unknown]
  - Bone pain [Unknown]
